FAERS Safety Report 5474904-5 (Version None)
Quarter: 2007Q4

REPORT INFORMATION
  Report Type: 
  Country: None (occurrence: None)
  Receive Date: 20071002
  Receipt Date: 20070924
  Transmission Date: 20080405
  Serious: Yes (Hospitalization, Other)
  Sender: FDA-Public Use
  Company Number: US-JNJFOC-20070905292

PATIENT
  Age: 14 Year
  Sex: Female
  Weight: 55.79 kg

DRUGS (3)
  1. RISPERDAL [Suspect]
     Indication: ATTENTION DEFICIT/HYPERACTIVITY DISORDER
     Route: 048
  2. LEXAPRO [Concomitant]
     Route: 048
  3. YAZ [Concomitant]
     Indication: ORAL CONTRACEPTION

REACTIONS (7)
  - ANXIETY [None]
  - ARTHRALGIA [None]
  - DISTURBANCE IN ATTENTION [None]
  - HYPERSOMNIA [None]
  - OFF LABEL USE [None]
  - PSYCHOTIC DISORDER [None]
  - WEIGHT INCREASED [None]
